FAERS Safety Report 17913582 (Version 3)
Quarter: 2020Q2

REPORT INFORMATION
  Report Type: Report from Study
  Country: DE (occurrence: DE)
  Receive Date: 20200618
  Receipt Date: 20200622
  Transmission Date: 20200714
  Serious: Yes (Life-Threatening, Hospitalization)
  Sender: FDA-Public Use
  Company Number: DE-CELGENEUS-DEU-20200505843

PATIENT
  Age: 60 Year
  Sex: Male
  Weight: 100 kg

DRUGS (36)
  1. JONOSTERIL [Concomitant]
     Indication: PNEUMONIA
     Dosage: 500ML/1000ML
     Route: 041
     Dates: start: 20200515
  2. NOREPINEPHRINE. [Concomitant]
     Active Substance: NOREPINEPHRINE
     Indication: CARDIOVASCULAR DISORDER
     Route: 065
     Dates: start: 20200516
  3. NOREPINEPHRINE. [Concomitant]
     Active Substance: NOREPINEPHRINE
     Indication: PULMONARY SEPSIS
     Route: 065
     Dates: start: 2020
  4. CALCIUM GLUCONATE. [Concomitant]
     Active Substance: CALCIUM GLUCONATE
     Indication: PRODUCT USED FOR UNKNOWN INDICATION
     Route: 041
     Dates: start: 20200517
  5. METOCLOPRAMIDE. [Concomitant]
     Active Substance: METOCLOPRAMIDE
     Indication: CONSTIPATION
     Route: 041
     Dates: start: 20200519
  6. ESPUMISAM [Concomitant]
     Indication: FLATULENCE
     Route: 048
     Dates: start: 20200513
  7. NACL [Concomitant]
     Active Substance: SODIUM CHLORIDE
     Indication: PRODUCT USED FOR UNKNOWN INDICATION
     Dosage: 0.9%/10 ML
     Route: 055
     Dates: start: 20200508, end: 20200512
  8. TAVEGIL [Concomitant]
     Active Substance: CLEMASTINE FUMARATE
     Indication: PROPHYLAXIS
     Dosage: 2 MILLIGRAM
     Route: 041
     Dates: start: 20200506, end: 20200513
  9. LASIX [Concomitant]
     Active Substance: FUROSEMIDE
     Indication: PRODUCT USED FOR UNKNOWN INDICATION
     Route: 041
     Dates: start: 20200514, end: 20200514
  10. JONOSTERIL [Concomitant]
     Indication: PULMONARY SEPSIS
     Route: 065
     Dates: start: 2020
  11. PROPOFOL. [Concomitant]
     Active Substance: PROPOFOL
     Indication: PULMONARY SEPSIS
     Route: 041
     Dates: start: 20200516
  12. HEPARIN PLUS NACL [Concomitant]
     Indication: THROMBOSIS PROPHYLAXIS
     Dosage: 10000IU/50ML
     Route: 041
     Dates: start: 20200517
  13. ELOTUZUMAB. [Suspect]
     Active Substance: ELOTUZUMAB
     Indication: PLASMA CELL MYELOMA
     Dosage: 989 MILLIGRAM
     Route: 041
     Dates: start: 20200429, end: 20200513
  14. INNOHEP [Concomitant]
     Active Substance: TINZAPARIN SODIUM
     Indication: THROMBOSIS PROPHYLAXIS
     Dosage: 4500 IU (INTERNATIONAL UNIT)
     Route: 058
     Dates: start: 20200429
  15. STEROFUNDIN [Concomitant]
     Active Substance: CALCIUM CHLORIDE\MAGNESIUM CHLORIDE\POTASSIUM CHLORIDE\SODIUM ACETATE\SODIUM CHLORIDE
     Indication: PULMONARY SEPSIS
     Route: 065
     Dates: start: 2020
  16. PROPOFOL. [Concomitant]
     Active Substance: PROPOFOL
     Indication: ANXIETY
     Dosage: 2ML UNIT DOSE
     Route: 041
     Dates: start: 20200515, end: 20200515
  17. MOVICOL [Concomitant]
     Active Substance: POLYETHYLENE GLYCOL 3350\POTASSIUM CHLORIDE\SODIUM BICARBONATE\SODIUM CHLORIDE
     Indication: CONSTIPATION
     Route: 048
     Dates: start: 20200430, end: 20200516
  18. MIDAZOLAM. [Concomitant]
     Active Substance: MIDAZOLAM
     Indication: ANXIETY
     Route: 041
     Dates: start: 20200515, end: 20200515
  19. SUFENTANIL [Concomitant]
     Active Substance: SUFENTANIL
     Indication: ANALGESIC THERAPY
     Dosage: 500UG/50ML
     Route: 041
     Dates: start: 20200516
  20. SEVOFLURANE. [Concomitant]
     Active Substance: SEVOFLURANE
     Indication: ANAESTHESIA
     Dosage: 50ML 1FU
     Route: 065
     Dates: start: 20200517
  21. ROCURONIUN BROMIDE [Concomitant]
     Indication: ANAESTHESIA
     Route: 065
     Dates: start: 20200517, end: 20200517
  22. KYPROLIS [Suspect]
     Active Substance: CARFILZOMIB
     Indication: PLASMA CELL MYELOMA
     Dosage: 42.4 MILLIGRAM
     Route: 041
     Dates: start: 20200429, end: 20200430
  23. ATROVENT [Concomitant]
     Active Substance: IPRATROPIUM BROMIDE
     Indication: PULMONARY SEPSIS
     Route: 065
     Dates: start: 2020
  24. FRESUBIN HP ENERGY [Concomitant]
     Indication: PARENTERAL NUTRITION
     Dosage: 1200 MILLILITER
     Route: 065
     Dates: start: 20200517
  25. DEXAMETHASONE. [Suspect]
     Active Substance: DEXAMETHASONE
     Indication: PLASMA CELL MYELOMA
     Dosage: 8 MILLIGRAM
     Route: 040
     Dates: start: 20200429, end: 20200513
  26. STEROFUNDIN [Concomitant]
     Active Substance: CALCIUM CHLORIDE\MAGNESIUM CHLORIDE\POTASSIUM CHLORIDE\SODIUM ACETATE\SODIUM CHLORIDE
     Indication: PNEUMONIA
     Route: 041
     Dates: start: 20200515
  27. SUFENTANIL [Concomitant]
     Active Substance: SUFENTANIL
     Indication: PULMONARY SEPSIS
     Route: 065
     Dates: start: 2020
  28. ROCURONIUN BROMIDE [Concomitant]
     Indication: PULMONARY SEPSIS
     Route: 065
     Dates: start: 2020
  29. ATROVENT [Concomitant]
     Active Substance: IPRATROPIUM BROMIDE
     Indication: PNEUMONIA
     Dosage: 1000 MICROGRAM  (PULMONAL)
     Route: 055
     Dates: start: 20200514, end: 20200514
  30. SULTANOL [Concomitant]
     Active Substance: ALBUTEROL SULFATE
     Indication: PNEUMONIA
     Dosage: 5 MILLIGRAM
     Route: 055
     Dates: start: 20200514
  31. GANCICLOVIR+NACL [Concomitant]
     Indication: PRODUCT USED FOR UNKNOWN INDICATION
     Dosage: 250MG/50ML 100ML/HR
     Route: 041
     Dates: start: 20200519
  32. PREGABADOR [Concomitant]
     Active Substance: PREGABALIN
     Indication: PROPHYLAXIS
     Dosage: 150 MILLIGRAM
     Route: 048
     Dates: start: 20200511
  33. LENALIDOMIDE [Suspect]
     Active Substance: LENALIDOMIDE
     Indication: PLASMA CELL MYELOMA
     Dosage: 25 MILLIGRAM
     Route: 048
     Dates: start: 20200429, end: 20200513
  34. KYPROLIS [Suspect]
     Active Substance: CARFILZOMIB
     Dosage: 76.32 MILLIGRAM
     Route: 041
     Dates: start: 20200506, end: 20200513
  35. DEXAMETHASONE. [Suspect]
     Active Substance: DEXAMETHASONE
     Dosage: 28 MILLIGRAM
     Route: 048
     Dates: start: 20200429, end: 20200513
  36. SULTANOL [Concomitant]
     Active Substance: ALBUTEROL SULFATE
     Indication: PULMONARY SEPSIS

REACTIONS (2)
  - Pulmonary sepsis [Recovering/Resolving]
  - Cerebral infarction [Recovering/Resolving]

NARRATIVE: CASE EVENT DATE: 20200515
